FAERS Safety Report 7979280-1 (Version None)
Quarter: 2011Q4

REPORT INFORMATION
  Report Type: 
  Country: None (occurrence: None)
  Receive Date: 20111213
  Receipt Date: 20111213
  Transmission Date: 20120403
  Serious: Yes (Hospitalization)
  Sender: FDA-Public Use
  Company Number: None

PATIENT
  Age: 54 Year
  Sex: 0
  Weight: 88.3 kg

DRUGS (2)
  1. VERAPAMIL [Suspect]
     Indication: HYPERTENSION
     Dosage: 240 MG EVERY DAY PO
     Route: 048
     Dates: start: 20110620
  2. PRAZOSIN HCL [Suspect]
     Indication: HYPERTENSION
     Dosage: 2 MG AT BEDTIME PO
     Route: 048
     Dates: start: 20110707, end: 20111111

REACTIONS (8)
  - HEART RATE IRREGULAR [None]
  - CHEST PAIN [None]
  - SYNCOPE [None]
  - FALL [None]
  - DIZZINESS POSTURAL [None]
  - PALPITATIONS [None]
  - PRESYNCOPE [None]
  - HYPOTENSION [None]
